FAERS Safety Report 25647950 (Version 3)
Quarter: 2025Q3

REPORT INFORMATION
  Report Type: Report from Study
  Country: US (occurrence: US)
  Receive Date: 20250806
  Receipt Date: 20250811
  Transmission Date: 20251020
  Serious: Yes (Life-Threatening, Hospitalization, Other)
  Sender: IPSEN BIOPHARMACEUTICALS, INC.
  Company Number: US-IPSEN Group, Research and Development-2025-18697

PATIENT
  Age: 34 Year
  Sex: Male

DRUGS (2)
  1. BYLVAY [Suspect]
     Active Substance: ODEVIXIBAT
     Indication: Alagille syndrome
     Dates: start: 20250625, end: 20250725
  2. BYLVAY [Suspect]
     Active Substance: ODEVIXIBAT
     Indication: Primary biliary cholangitis
     Dosage: 1200 MCG ORAL CAPSULE BY MOUTH TWICE DAILY WITH A MEAL
     Dates: start: 20250625

REACTIONS (4)
  - Heart rate increased [Recovering/Resolving]
  - Loss of consciousness [Recovering/Resolving]
  - Abdominal pain upper [Recovering/Resolving]
  - Hypersensitivity [Unknown]
